FAERS Safety Report 25650191 (Version 1)
Quarter: 2025Q3

REPORT INFORMATION
  Report Type: Spontaneous
  Country: US (occurrence: None)
  Receive Date: 20250806
  Receipt Date: 20250806
  Transmission Date: 20251020
  Serious: No
  Sender: FDA-CTU
  Company Number: None

PATIENT
  Sex: Female
  Weight: 83.91 kg

DRUGS (12)
  1. SPRAVATO [Suspect]
     Active Substance: ESKETAMINE
     Indication: Post-traumatic stress disorder
     Dosage: 84 MG TWICE  WEEK NASLLY ?
     Route: 045
     Dates: start: 20250702, end: 20250729
  2. ESTRADIOL [Concomitant]
     Active Substance: ESTRADIOL
  3. BIOTIN [Concomitant]
     Active Substance: BIOTIN
  4. FAMOTIDINE [Concomitant]
     Active Substance: FAMOTIDINE
  5. VITAMINS [Concomitant]
     Active Substance: VITAMINS
  6. ZOFRAN [Concomitant]
     Active Substance: ONDANSETRON HYDROCHLORIDE
  7. SUMATRIPTAN [Concomitant]
     Active Substance: SUMATRIPTAN
  8. TRAMADOL [Concomitant]
     Active Substance: TRAMADOL
  9. OMEPRAZOLE [Concomitant]
     Active Substance: OMEPRAZOLE
  10. LUNESTA [Concomitant]
     Active Substance: ESZOPICLONE
  11. HYDROXYZINE [Concomitant]
     Active Substance: HYDROXYZINE HYDROCHLORIDE
  12. VIVELLE-DOT [Concomitant]
     Active Substance: ESTRADIOL

REACTIONS (7)
  - Panic attack [None]
  - Depression [None]
  - Dissociation [None]
  - Blood pressure increased [None]
  - Headache [None]
  - Tongue blistering [None]
  - Therapy cessation [None]

NARRATIVE: CASE EVENT DATE: 20250722
